FAERS Safety Report 18108559 (Version 1)
Quarter: 2020Q3

REPORT INFORMATION
  Report Type: Other
  Country: JP (occurrence: JP)
  Receive Date: 20200804
  Receipt Date: 20200804
  Transmission Date: 20201103
  Serious: Yes (Other)
  Sender: FDA-Public Use
  Company Number: JP-ROCHE-2651320

PATIENT

DRUGS (114)
  1. DOXIFLURIDINE [Suspect]
     Active Substance: DOXIFLURIDINE
     Indication: NEOPLASM MALIGNANT
     Route: 065
  2. TRASTUZUMAB EMTANSINE [Suspect]
     Active Substance: ADO-TRASTUZUMAB EMTANSINE
     Indication: NEOPLASM MALIGNANT
     Route: 065
  3. MELPHALAN. [Suspect]
     Active Substance: MELPHALAN
     Indication: NEOPLASM MALIGNANT
     Route: 065
  4. CYCLOPHOSPHAMIDE. [Suspect]
     Active Substance: CYCLOPHOSPHAMIDE
     Indication: NEOPLASM MALIGNANT
     Route: 065
  5. L?ASPARAGINASE [Suspect]
     Active Substance: ASPARAGINASE
     Indication: NEOPLASM MALIGNANT
     Route: 065
  6. NIMUSTINE [Suspect]
     Active Substance: NIMUSTINE
     Indication: NEOPLASM MALIGNANT
     Route: 065
  7. VINDESINE SULFATE [Suspect]
     Active Substance: VINDESINE SULFATE
     Indication: NEOPLASM MALIGNANT
     Route: 065
  8. PACLITAXEL. [Suspect]
     Active Substance: PACLITAXEL
     Indication: NEOPLASM MALIGNANT
     Route: 065
  9. BLEOMYCIN [Suspect]
     Active Substance: BLEOMYCIN SULFATE
     Indication: NEOPLASM MALIGNANT
     Route: 065
  10. ACLARUBICIN [Suspect]
     Active Substance: ACLARUBICIN
     Indication: NEOPLASM MALIGNANT
     Route: 065
  11. GEMCITABINE. [Suspect]
     Active Substance: GEMCITABINE
     Indication: NEOPLASM MALIGNANT
     Route: 065
  12. CABAZITAXEL [Suspect]
     Active Substance: CABAZITAXEL
     Indication: NEOPLASM MALIGNANT
     Route: 065
  13. STREPTOZOCIN [Suspect]
     Active Substance: STREPTOZOCIN
     Indication: NEOPLASM MALIGNANT
     Route: 065
  14. CLADRIBINE. [Suspect]
     Active Substance: CLADRIBINE
     Indication: NEOPLASM MALIGNANT
     Route: 065
  15. NITROGEN MUSTARD [Suspect]
     Active Substance: MECHLORETHAMINE OXIDE HYDROCHLORIDE
     Indication: NEOPLASM MALIGNANT
     Route: 065
  16. THIOTEPA. [Suspect]
     Active Substance: THIOTEPA
     Indication: NEOPLASM MALIGNANT
     Route: 065
  17. SORAFENIB [Suspect]
     Active Substance: SORAFENIB
     Indication: NEOPLASM MALIGNANT
     Route: 065
  18. DASATINIB. [Suspect]
     Active Substance: DASATINIB
     Indication: NEOPLASM MALIGNANT
     Route: 065
  19. LAPATINIB [Suspect]
     Active Substance: LAPATINIB
     Indication: NEOPLASM MALIGNANT
     Route: 065
  20. BORTEZOMIB. [Suspect]
     Active Substance: BORTEZOMIB
     Indication: NEOPLASM MALIGNANT
     Route: 065
  21. PANOBINOSTAT [Suspect]
     Active Substance: PANOBINOSTAT
     Indication: NEOPLASM MALIGNANT
     Route: 065
  22. IPILIMUMAB [Suspect]
     Active Substance: IPILIMUMAB
     Indication: NEOPLASM MALIGNANT
     Route: 065
  23. CELMOLEUKIN [Suspect]
     Active Substance: CELMOLEUKIN
     Indication: NEOPLASM MALIGNANT
     Route: 065
  24. CARBOQUONE [Suspect]
     Active Substance: CARBOQUONE
     Indication: NEOPLASM MALIGNANT
     Route: 065
  25. AMRUBICIN [Suspect]
     Active Substance: AMRUBICIN
     Indication: NEOPLASM MALIGNANT
     Route: 065
  26. ENOCITABINE [Suspect]
     Active Substance: ENOCITABINE
     Indication: NEOPLASM MALIGNANT
     Route: 065
  27. CYLOCIDE [Suspect]
     Active Substance: CYTARABINE
     Indication: NEOPLASM MALIGNANT
     Route: 065
  28. ACTINOMYCIN D [Suspect]
     Active Substance: DACTINOMYCIN
     Indication: NEOPLASM MALIGNANT
     Route: 065
  29. VINORELBINE [Suspect]
     Active Substance: VINORELBINE TARTRATE
     Indication: NEOPLASM MALIGNANT
     Route: 065
  30. BENDAMUSTINE [Suspect]
     Active Substance: BENDAMUSTINE
     Indication: NEOPLASM MALIGNANT
     Route: 065
  31. CARMUSTINE. [Suspect]
     Active Substance: CARMUSTINE
     Indication: NEOPLASM MALIGNANT
     Route: 065
  32. GEFITINIB. [Suspect]
     Active Substance: GEFITINIB
     Indication: NEOPLASM MALIGNANT
     Route: 065
  33. TAMIBAROTENE [Suspect]
     Active Substance: TAMIBAROTENE
     Indication: NEOPLASM MALIGNANT
     Route: 065
  34. VANDETANIB. [Suspect]
     Active Substance: VANDETANIB
     Indication: NEOPLASM MALIGNANT
     Route: 065
  35. TRASTUZUMAB. [Suspect]
     Active Substance: TRASTUZUMAB
     Indication: NEOPLASM MALIGNANT
     Route: 065
  36. PEMETREXED. [Suspect]
     Active Substance: PEMETREXED
     Indication: NEOPLASM MALIGNANT
     Route: 065
  37. FLUDARABINE [Suspect]
     Active Substance: FLUDARABINE PHOSPHATE
     Indication: NEOPLASM MALIGNANT
     Route: 065
  38. PENTOSTATIN. [Suspect]
     Active Substance: PENTOSTATIN
     Indication: NEOPLASM MALIGNANT
     Route: 065
  39. AFATINIB [Suspect]
     Active Substance: AFATINIB
     Indication: NEOPLASM MALIGNANT
     Route: 065
  40. NILOTINIB [Suspect]
     Active Substance: NILOTINIB
     Indication: NEOPLASM MALIGNANT
     Route: 065
  41. AXITINIB [Suspect]
     Active Substance: AXITINIB
     Indication: NEOPLASM MALIGNANT
     Route: 065
  42. VEMURAFENIB. [Suspect]
     Active Substance: VEMURAFENIB
     Indication: NEOPLASM MALIGNANT
     Route: 065
  43. TEGAFUR;URACIL [Suspect]
     Active Substance: TEGAFUR\URACIL
     Indication: NEOPLASM MALIGNANT
     Route: 065
  44. CYTARABINE. [Suspect]
     Active Substance: CYTARABINE
     Indication: NEOPLASM MALIGNANT
     Route: 065
  45. NEDAPLATIN [Suspect]
     Active Substance: NEDAPLATIN
     Indication: NEOPLASM MALIGNANT
     Route: 065
  46. OXALIPLATIN. [Suspect]
     Active Substance: OXALIPLATIN
     Indication: NEOPLASM MALIGNANT
     Route: 065
  47. MITOXANTRONE [Suspect]
     Active Substance: MITOXANTRONE HYDROCHLORIDE
     Indication: NEOPLASM MALIGNANT
     Route: 065
  48. PIRARUBICIN [Suspect]
     Active Substance: PIRARUBICIN
     Indication: NEOPLASM MALIGNANT
     Route: 065
  49. TEMOZOLOMIDE. [Suspect]
     Active Substance: TEMOZOLOMIDE
     Indication: NEOPLASM MALIGNANT
     Route: 065
  50. NOGITECAN HYDROCHLORIDE [Suspect]
     Active Substance: TOPOTECAN HYDROCHLORIDE
     Indication: NEOPLASM MALIGNANT
     Route: 065
  51. PEPLOMYCIN [Suspect]
     Active Substance: PEPLOMYCIN
     Indication: NEOPLASM MALIGNANT
     Route: 065
  52. THALIDOMIDE [Suspect]
     Active Substance: THALIDOMIDE
     Indication: NEOPLASM MALIGNANT
     Route: 065
  53. SIROLIMUS. [Suspect]
     Active Substance: SIROLIMUS
     Indication: NEOPLASM MALIGNANT
     Route: 065
  54. MOGAMULIZUMAB [Suspect]
     Active Substance: MOGAMULIZUMAB
     Indication: NEOPLASM MALIGNANT
     Route: 065
  55. REGORAFENIB. [Suspect]
     Active Substance: REGORAFENIB
     Indication: NEOPLASM MALIGNANT
     Route: 065
  56. NIVOLUMAB [Suspect]
     Active Substance: NIVOLUMAB
     Indication: NEOPLASM MALIGNANT
     Route: 065
  57. PERTUZUMAB. [Suspect]
     Active Substance: PERTUZUMAB
     Indication: NEOPLASM MALIGNANT
     Route: 065
  58. CAPECITABINE. [Suspect]
     Active Substance: CAPECITABINE
     Indication: NEOPLASM MALIGNANT
     Route: 065
  59. RITUXIMAB. [Suspect]
     Active Substance: RITUXIMAB
     Indication: NEOPLASM MALIGNANT
     Route: 065
  60. TEGAFUR [Suspect]
     Active Substance: TEGAFUR
     Indication: NEOPLASM MALIGNANT
     Route: 065
  61. PROCARBAZINE [Suspect]
     Active Substance: PROCARBAZINE
     Indication: NEOPLASM MALIGNANT
     Route: 065
  62. METHOTREXATE. [Suspect]
     Active Substance: METHOTREXATE
     Indication: NEOPLASM MALIGNANT
     Route: 065
  63. IDARUBICIN [Suspect]
     Active Substance: IDARUBICIN
     Indication: NEOPLASM MALIGNANT
     Route: 065
  64. BRENTUXIMAB VEDOTIN [Suspect]
     Active Substance: BRENTUXIMAB VEDOTIN
     Indication: NEOPLASM MALIGNANT
     Route: 065
  65. SUNITINIB [Suspect]
     Active Substance: SUNITINIB
     Indication: NEOPLASM MALIGNANT
     Route: 065
  66. CETUXIMAB. [Suspect]
     Active Substance: CETUXIMAB
     Indication: NEOPLASM MALIGNANT
     Route: 065
  67. VORINOSTAT [Suspect]
     Active Substance: VORINOSTAT
     Indication: NEOPLASM MALIGNANT
     Route: 065
  68. TECELEUKIN [Suspect]
     Active Substance: TECELEUKIN
     Indication: NEOPLASM MALIGNANT
     Route: 065
  69. TRETINOIN. [Suspect]
     Active Substance: TRETINOIN
     Indication: NEOPLASM MALIGNANT
     Route: 065
  70. FLUOROURACIL. [Suspect]
     Active Substance: FLUOROURACIL
     Indication: NEOPLASM MALIGNANT
     Route: 065
  71. MITOBRONITOL [Suspect]
     Active Substance: MITOBRONITOL
     Indication: NEOPLASM MALIGNANT
     Route: 065
  72. CARBOPLATIN. [Suspect]
     Active Substance: CARBOPLATIN
     Indication: NEOPLASM MALIGNANT
     Route: 065
  73. EPIRUBICIN [Suspect]
     Active Substance: EPIRUBICIN
     Indication: NEOPLASM MALIGNANT
     Route: 065
  74. RANIMUSTINE [Suspect]
     Active Substance: RANIMUSTINE
     Indication: NEOPLASM MALIGNANT
     Route: 065
  75. TRABECTEDIN [Suspect]
     Active Substance: TRABECTEDIN
     Indication: NEOPLASM MALIGNANT
     Route: 065
  76. IMATINIB. [Suspect]
     Active Substance: IMATINIB MESYLATE
     Indication: NEOPLASM MALIGNANT
     Route: 065
  77. PANITUMUMAB [Suspect]
     Active Substance: PANITUMUMAB
     Indication: NEOPLASM MALIGNANT
     Route: 065
  78. EVEROLIMUS. [Suspect]
     Active Substance: EVEROLIMUS
     Indication: NEOPLASM MALIGNANT
     Route: 065
  79. TEMSIROLIMUS. [Suspect]
     Active Substance: TEMSIROLIMUS
     Indication: NEOPLASM MALIGNANT
     Route: 065
  80. PAZOPANIB [Suspect]
     Active Substance: PAZOPANIB
     Indication: NEOPLASM MALIGNANT
     Route: 065
  81. LENVATINIB [Suspect]
     Active Substance: LENVATINIB
     Indication: NEOPLASM MALIGNANT
     Route: 065
  82. OFATUMUMAB [Suspect]
     Active Substance: OFATUMUMAB
     Indication: NEOPLASM MALIGNANT
     Route: 065
  83. ERLOTINIB [Suspect]
     Active Substance: ERLOTINIB
     Indication: NEOPLASM MALIGNANT
     Route: 065
  84. ETOPOSIDE. [Suspect]
     Active Substance: ETOPOSIDE
     Indication: NEOPLASM MALIGNANT
     Route: 065
  85. GIMERACIL;OTERACIL;TEGAFUR [Suspect]
     Active Substance: GIMERACIL\OTERACIL\TEGAFUR
     Indication: NEOPLASM MALIGNANT
     Route: 065
  86. BUSULFAN. [Suspect]
     Active Substance: BUSULFAN
     Indication: NEOPLASM MALIGNANT
     Route: 065
  87. MERCAPTOPURINE. [Suspect]
     Active Substance: MERCAPTOPURINE
     Indication: NEOPLASM MALIGNANT
     Route: 065
  88. HYDROXYCARBAMIDE [Suspect]
     Active Substance: HYDROXYUREA
     Indication: NEOPLASM MALIGNANT
     Route: 065
  89. SOBUZOXANE [Suspect]
     Active Substance: SOBUZOXANE
     Indication: NEOPLASM MALIGNANT
     Route: 065
  90. VINBLASTINE [Suspect]
     Active Substance: VINBLASTINE
     Indication: NEOPLASM MALIGNANT
     Route: 065
  91. ZINOSTATIN STIMALAMER [Suspect]
     Active Substance: ZINOSTATIN
     Indication: NEOPLASM MALIGNANT
     Route: 065
  92. DOXORUBICINE [Suspect]
     Active Substance: DOXORUBICIN
     Indication: NEOPLASM MALIGNANT
     Route: 065
  93. IFOSFAMIDE. [Suspect]
     Active Substance: IFOSFAMIDE
     Indication: NEOPLASM MALIGNANT
     Route: 065
  94. DOCETAXEL. [Suspect]
     Active Substance: DOCETAXEL
     Indication: NEOPLASM MALIGNANT
     Route: 065
  95. MIRIPLATIN [Suspect]
     Active Substance: MIRIPLATIN
     Indication: NEOPLASM MALIGNANT
     Route: 065
  96. ERIBULIN [Suspect]
     Active Substance: ERIBULIN
     Indication: NEOPLASM MALIGNANT
     Route: 065
  97. GEMTUZUMAB OZOGAMICIN [Suspect]
     Active Substance: GEMTUZUMAB OZOGAMICIN
     Indication: NEOPLASM MALIGNANT
     Route: 065
  98. POMALIDOMIDE [Suspect]
     Active Substance: POMALIDOMIDE
     Indication: NEOPLASM MALIGNANT
     Route: 065
  99. RUXOLITINIB [Suspect]
     Active Substance: RUXOLITINIB
     Indication: NEOPLASM MALIGNANT
     Route: 065
  100. BEVACIZUMAB. [Suspect]
     Active Substance: BEVACIZUMAB
     Indication: NEOPLASM MALIGNANT
     Route: 065
  101. ALECTINIB. [Suspect]
     Active Substance: ALECTINIB
     Indication: NEOPLASM MALIGNANT
     Route: 065
  102. CARMOFUR [Suspect]
     Active Substance: CARMOFUR
     Indication: NEOPLASM MALIGNANT
     Route: 065
  103. MITOMYCIN C [Suspect]
     Active Substance: MITOMYCIN
     Indication: NEOPLASM MALIGNANT
     Route: 065
  104. DACARBAZINE. [Suspect]
     Active Substance: DACARBAZINE
     Indication: NEOPLASM MALIGNANT
     Route: 065
  105. DAUNORUBICIN [Suspect]
     Active Substance: DAUNORUBICIN
     Indication: NEOPLASM MALIGNANT
     Route: 065
  106. IRINOTECAN [Suspect]
     Active Substance: IRINOTECAN
     Indication: NEOPLASM MALIGNANT
     Route: 065
  107. AZACITIDINE. [Suspect]
     Active Substance: AZACITIDINE
     Indication: NEOPLASM MALIGNANT
     Route: 065
  108. TIPIRACIL HYDROCHLORIDE [Suspect]
     Active Substance: TIPIRACIL HYDROCHLORIDE
     Indication: NEOPLASM MALIGNANT
     Route: 065
  109. ZINOSTATIN. [Suspect]
     Active Substance: ZINOSTATIN
     Indication: NEOPLASM MALIGNANT
     Route: 065
  110. BOSUTINIB [Suspect]
     Active Substance: BOSUTINIB
     Indication: NEOPLASM MALIGNANT
     Route: 065
  111. RAMUCIRUMAB [Suspect]
     Active Substance: RAMUCIRUMAB
     Indication: NEOPLASM MALIGNANT
     Route: 065
  112. LENALIDOMIDE [Suspect]
     Active Substance: LENALIDOMIDE
     Indication: NEOPLASM MALIGNANT
     Route: 065
  113. CRIZOTINIB [Suspect]
     Active Substance: CRIZOTINIB
     Indication: NEOPLASM MALIGNANT
     Route: 065
  114. ALEMTUZUMAB [Suspect]
     Active Substance: ALEMTUZUMAB
     Indication: NEOPLASM MALIGNANT
     Route: 065

REACTIONS (1)
  - Hepatitis B reactivation [Unknown]
